FAERS Safety Report 7270198-9 (Version None)
Quarter: 2011Q1

REPORT INFORMATION
  Report Type: 
  Country: None (occurrence: None)
  Receive Date: 20110125
  Receipt Date: 20110125
  Transmission Date: 20110831
  Serious: Yes (Other)
  Sender: FDA-Public Use
  Company Number: None

PATIENT
  Age: 7 Year
  Sex: Male
  Weight: 20.4119 kg

DRUGS (1)
  1. VYVANSE [Suspect]
     Indication: ATTENTION DEFICIT/HYPERACTIVITY DISORDER
     Dosage: 1 CAPSULE ONE TIME DAILY PO
     Route: 048
     Dates: start: 20110109, end: 20110109

REACTIONS (8)
  - HUNGER [None]
  - EMOTIONAL DISORDER [None]
  - HYPOPHAGIA [None]
  - NAUSEA [None]
  - MIDDLE INSOMNIA [None]
  - MENTAL DISORDER [None]
  - MALAISE [None]
  - DEPRESSED MOOD [None]
